FAERS Safety Report 13518832 (Version 1)
Quarter: 2017Q2

REPORT INFORMATION
  Report Type: Spontaneous
  Country: SE (occurrence: SE)
  Receive Date: 20170505
  Receipt Date: 20170505
  Transmission Date: 20170830
  Serious: Yes (Hospitalization)
  Sender: FDA-Public Use
  Company Number: SE-ESPERO PHARMACEUTICALS-ESP201704-000072

PATIENT
  Age: 60 Year
  Sex: Female

DRUGS (2)
  1. NITROLINGUAL PUMPSPRAY [Suspect]
     Active Substance: NITROGLYCERIN
     Route: 048
  2. OMNIPAQUE [Suspect]
     Active Substance: IOHEXOL
     Indication: SCAN WITH CONTRAST
     Route: 042

REACTIONS (5)
  - Urticaria [None]
  - Eyelid oedema [None]
  - Angioedema [Recovered/Resolved]
  - Hypersensitivity [Recovered/Resolved]
  - Eye pruritus [None]
